FAERS Safety Report 21758544 (Version 1)
Quarter: 2022Q4

REPORT INFORMATION
  Report Type: Spontaneous
  Country: EG (occurrence: EG)
  Receive Date: 20221221
  Receipt Date: 20221221
  Transmission Date: 20230112
  Serious: Yes (Hospitalization)
  Sender: FDA-Public Use
  Company Number: EG-NOVOPROD-1001273

PATIENT
  Sex: Male

DRUGS (1)
  1. INSULIN HUMAN [Suspect]
     Active Substance: INSULIN HUMAN
     Indication: Diabetes mellitus
     Dosage: 15 IU, QD (10U AT MORNING AND 5U AT NIGHT)
     Route: 058

REACTIONS (3)
  - Anaemia [Recovered/Resolved]
  - Diarrhoea [Recovered/Resolved]
  - Blood albumin decreased [Recovered/Resolved]
